FAERS Safety Report 16072972 (Version 2)
Quarter: 2024Q3

REPORT INFORMATION
  Report Type: Spontaneous
  Country: HU (occurrence: HU)
  Receive Date: 20190314
  Receipt Date: 20240821
  Transmission Date: 20241016
  Serious: Yes (Hospitalization, Other)
  Sender: MYLAN
  Company Number: HU-SOPHARMA-2018HU001201

PATIENT

DRUGS (4)
  1. ALLOPURINOL [Suspect]
     Active Substance: ALLOPURINOL
     Indication: Product used for unknown indication
     Dosage: UNK
     Route: 048
  2. TRAMADOL [Suspect]
     Active Substance: TRAMADOL\TRAMADOL HYDROCHLORIDE
     Indication: Back pain
     Dosage: UNK
     Route: 042
  3. GUAIFENESIN [Suspect]
     Active Substance: GUAIFENESIN
     Indication: Back pain
     Dosage: UNK
     Route: 042
  4. METHYLPREDNISOLONE [Suspect]
     Active Substance: METHYLPREDNISOLONE
     Indication: Back pain
     Dosage: UNK
     Route: 042

REACTIONS (5)
  - Uveitis [Unknown]
  - Oropharyngeal candidiasis [Unknown]
  - Conjunctivitis [Unknown]
  - Pruritus [Unknown]
  - Stevens-Johnson syndrome [Unknown]
